FAERS Safety Report 9011818 (Version 1)
Quarter: 2012Q4

REPORT INFORMATION
  Report Type: Spontaneous
  Country: US (occurrence: None)
  Receive Date: 20121228
  Receipt Date: 20121228
  Transmission Date: 20130627
  Serious: Yes (Other)
  Sender: FDA-Public Use
  Company Number: 20120770

PATIENT
  Age: 42 Year
  Sex: Female

DRUGS (4)
  1. ONDANSETRON [Suspect]
     Indication: DRUG USE FOR UNKNOWN INDICATION
  2. CITALOPRAM [Suspect]
  3. AMFETAMINE [Suspect]
  4. QUETIAPINE [Suspect]

REACTIONS (6)
  - Serotonin syndrome [None]
  - Cognitive disorder [None]
  - Blood pressure fluctuation [None]
  - Neuromyopathy [None]
  - Autonomic nervous system imbalance [None]
  - Mental status changes [None]
